FAERS Safety Report 6258980-8 (Version None)
Quarter: 2009Q3

REPORT INFORMATION
  Report Type: 
  Country: None (occurrence: None)
  Receive Date: 20090707
  Receipt Date: 20090626
  Transmission Date: 20100115
  Serious: Yes (Other)
  Sender: FDA-Public Use
  Company Number: PHEH2009US06851

PATIENT
  Sex: Female

DRUGS (2)
  1. RECLAST [Suspect]
     Dosage: UNK
     Dates: start: 20090401
  2. TYLENOL (CAPLET) [Suspect]
     Dosage: 2 DF, UNK

REACTIONS (11)
  - BACK PAIN [None]
  - BODY TEMPERATURE INCREASED [None]
  - FATIGUE [None]
  - FEELING ABNORMAL [None]
  - HEADACHE [None]
  - HYPERHIDROSIS [None]
  - INFECTION [None]
  - INFLUENZA [None]
  - MALAISE [None]
  - PAIN IN EXTREMITY [None]
  - TREMOR [None]
